FAERS Safety Report 16876635 (Version 1)
Quarter: 2019Q4

REPORT INFORMATION
  Report Type: Spontaneous
  Country: CA (occurrence: CA)
  Receive Date: 20191002
  Receipt Date: 20191002
  Transmission Date: 20200122
  Serious: Yes (Other)
  Sender: FDA-Public Use
  Company Number: CA-TEVA-2019-CA-1115109

PATIENT
  Age: 60 Year
  Sex: Male

DRUGS (17)
  1. KETAMINE HYDROCHLORIDE INJECTION USP [Suspect]
     Active Substance: KETAMINE HYDROCHLORIDE
     Indication: SEIZURE
     Route: 042
  2. KETAMINE HYDROCHLORIDE INJECTION USP [Suspect]
     Active Substance: KETAMINE HYDROCHLORIDE
     Route: 041
  3. CLOBAZAM. [Suspect]
     Active Substance: CLOBAZAM
     Indication: EPILEPSY
     Dosage: 20 MILLIGRAM DAILY;
     Route: 065
  4. KETAMINE HYDROCHLORIDE INJECTION USP [Suspect]
     Active Substance: KETAMINE HYDROCHLORIDE
     Route: 040
  5. PMS-PROPOFOL [Suspect]
     Active Substance: PROPOFOL
     Indication: SEIZURE
     Route: 040
  6. PHENYTOIN. [Suspect]
     Active Substance: PHENYTOIN
     Indication: SEIZURE
     Route: 065
  7. PHENYTOIN. [Suspect]
     Active Substance: PHENYTOIN
     Indication: SEIZURE
     Dosage: 450 MILLIGRAM DAILY;
     Route: 065
  8. PHENYTOIN. [Suspect]
     Active Substance: PHENYTOIN
     Indication: CEREBRAL PALSY
  9. MIDAZOLAM [Suspect]
     Active Substance: MIDAZOLAM HYDROCHLORIDE
     Route: 041
  10. CLOBAZAM. [Suspect]
     Active Substance: CLOBAZAM
     Indication: CEREBRAL PALSY
  11. LEVETIRACETAM. [Suspect]
     Active Substance: LEVETIRACETAM
     Indication: SEIZURE
     Dosage: 3000 MILLIGRAM DAILY;
     Route: 065
  12. PMS-PROPOFOL [Suspect]
     Active Substance: PROPOFOL
     Route: 041
  13. MIDAZOLAM [Suspect]
     Active Substance: MIDAZOLAM HYDROCHLORIDE
     Indication: SEIZURE
     Route: 040
  14. LEVOFLOXACIN. [Concomitant]
     Active Substance: LEVOFLOXACIN
     Indication: PNEUMONIA
     Route: 065
  15. PHENYTOIN. [Suspect]
     Active Substance: PHENYTOIN
     Indication: EPILEPSY
  16. PHENYTOIN. [Suspect]
     Active Substance: PHENYTOIN
     Indication: EPILEPSY
     Dosage: 250 MILLIGRAM DAILY;
     Route: 065
  17. PHENYTOIN. [Suspect]
     Active Substance: PHENYTOIN
     Indication: CEREBRAL PALSY
     Dosage: 450 MILLIGRAM DAILY;
     Route: 065

REACTIONS (2)
  - Drug ineffective [Recovered/Resolved]
  - Hypotension [Recovered/Resolved]
